FAERS Safety Report 5478622-9 (Version None)
Quarter: 2007Q4

REPORT INFORMATION
  Report Type: 
  Country: None (occurrence: None)
  Receive Date: 20071005
  Receipt Date: 20070926
  Transmission Date: 20080405
  Serious: Yes (Death, Other)
  Sender: FDA-Public Use
  Company Number: AT-SHR-AT-2007-036455

PATIENT
  Age: 29 Year
  Sex: Male

DRUGS (5)
  1. CAMPATH [Suspect]
     Dosage: 20 MG, 2 DOSES
     Route: 042
     Dates: start: 20050101, end: 20050101
  2. PREDNISOLONE [Concomitant]
     Dosage: 250 MG, 1 DOSE
     Route: 042
     Dates: start: 20050101, end: 20050101
  3. TACROLIMUS [Concomitant]
     Dates: start: 20050101
  4. VALGANCICLOVIR HCL [Concomitant]
     Indication: ANTIVIRAL PROPHYLAXIS
     Dates: start: 20050101
  5. COTRIM [Concomitant]
     Indication: PROPHYLAXIS
     Dates: start: 20050101

REACTIONS (7)
  - ASPERGILLOSIS [None]
  - CANDIDIASIS [None]
  - KAPOSI'S SARCOMA [None]
  - MULTI-ORGAN FAILURE [None]
  - OFF LABEL USE [None]
  - PANCYTOPENIA [None]
  - RESPIRATORY FAILURE [None]
